FAERS Safety Report 4989291-6 (Version None)
Quarter: 2006Q2

REPORT INFORMATION
  Report Type: 
  Country: None (occurrence: None)
  Receive Date: 20060425
  Receipt Date: 20060417
  Transmission Date: 20061013
  Serious: Yes (Hospitalization, Disabling, Other)
  Sender: FDA-Public Use
  Company Number: 2005127367

PATIENT
  Age: 69 Year
  Sex: Female
  Weight: 53.0709 kg

DRUGS (3)
  1. NORVASC [Suspect]
     Indication: HYPERTENSION
     Dosage: 10 MG (DAILY INTERVAL: EVERYDAY)
     Dates: start: 20050101
  2. ASPIRIN [Concomitant]
  3. CATAPRES-TTS-1 [Concomitant]

REACTIONS (1)
  - CEREBROVASCULAR ACCIDENT [None]
